FAERS Safety Report 8261714-9 (Version None)
Quarter: 2012Q2

REPORT INFORMATION
  Report Type: 
  Country: None (occurrence: None)
  Receive Date: 20120405
  Receipt Date: 20120327
  Transmission Date: 20120825
  Serious: Yes (Hospitalization, Other)
  Sender: FDA-Public Use
  Company Number: FR-SANOFI-AVENTIS-2012SA020884

PATIENT
  Age: 68 Year
  Sex: Female

DRUGS (11)
  1. ZESTRIL [Concomitant]
     Route: 048
  2. PLAQUENIL [Suspect]
     Dosage: STRENGTH; 200 MG
     Route: 048
     Dates: start: 20111222, end: 20120201
  3. TRIMEBUTINE [Concomitant]
     Route: 048
  4. LEVOTHYROXINE SODIUM [Concomitant]
     Dosage: STRENGTH; 100 MCG
     Route: 048
  5. TRAMADOL HCL [Concomitant]
     Route: 048
  6. LANSOPRAZOLE [Concomitant]
     Route: 048
  7. PRAXILENE [Concomitant]
     Route: 048
  8. IXEL [Concomitant]
     Dosage: STRENGTH; 25 MG
     Route: 048
  9. AMLODIPINE/VALSARTAN [Concomitant]
     Route: 048
  10. SPASFON [Concomitant]
     Route: 048
  11. SULFARLEM [Concomitant]
     Route: 048

REACTIONS (2)
  - AFFECTIVE DISORDER [None]
  - DEPRESSION [None]
